FAERS Safety Report 9932922 (Version 1)
Quarter: 2014Q1

REPORT INFORMATION
  Report Type: Spontaneous
  Country: US (occurrence: US)
  Receive Date: 20140228
  Receipt Date: 20140228
  Transmission Date: 20141002
  Serious: No
  Sender: FDA-Public Use
  Company Number: US-GLAXOSMITHKLINE-A1039740A

PATIENT
  Age: 61 Year
  Sex: Female

DRUGS (1)
  1. LAMICTAL [Suspect]
     Indication: NERVOUS SYSTEM DISORDER
     Dosage: 200MG UNKNOWN
     Dates: start: 20051103

REACTIONS (3)
  - Mood altered [Unknown]
  - Feeling jittery [Unknown]
  - Mood swings [Unknown]
